FAERS Safety Report 16135388 (Version 7)
Quarter: 2019Q4

REPORT INFORMATION
  Report Type: Spontaneous
  Country: US (occurrence: US)
  Receive Date: 20190329
  Receipt Date: 20191126
  Transmission Date: 20200122
  Serious: No
  Sender: FDA-Public Use
  Company Number: US-SA-2019SA085881

PATIENT
  Age: 76 Year
  Sex: Female

DRUGS (2)
  1. PRALUENT [Suspect]
     Active Substance: ALIROCUMAB
     Dosage: 75 MG, QOW
     Route: 058
     Dates: start: 20190628
  2. PRALUENT [Suspect]
     Active Substance: ALIROCUMAB
     Indication: TYPE V HYPERLIPIDAEMIA
     Dosage: 150 MG, QOW
     Route: 058
     Dates: start: 20181226

REACTIONS (9)
  - Decreased appetite [Unknown]
  - Hyperhidrosis [Unknown]
  - Injection site rash [Unknown]
  - Abdominal distension [Unknown]
  - Cough [Unknown]
  - Injection site erythema [Unknown]
  - Therapeutic response unexpected [Unknown]
  - Confusional state [Unknown]
  - Bladder pain [Unknown]
